FAERS Safety Report 23240272 (Version 1)
Quarter: 2023Q4

REPORT INFORMATION
  Report Type: Other
  Country: CN (occurrence: CN)
  Receive Date: 20231129
  Receipt Date: 20231129
  Transmission Date: 20240110
  Serious: Yes (Hospitalization, Other)
  Sender: FDA-Public Use
  Company Number: CN-ASTELLAS-2023US035416

PATIENT
  Age: 76 Year
  Sex: Male

DRUGS (1)
  1. ENZALUTAMIDE [Suspect]
     Active Substance: ENZALUTAMIDE
     Indication: Prostate cancer stage 0
     Dosage: 160 MG (4 CAPSULES OF 40 MG), ONCE DAILY
     Route: 048
     Dates: start: 20231101, end: 20231120

REACTIONS (8)
  - Malnutrition [Unknown]
  - Nausea [Not Recovered/Not Resolved]
  - Vomiting [Not Recovered/Not Resolved]
  - Feeding disorder [Unknown]
  - Marasmus [Unknown]
  - Bone pain [Unknown]
  - Asthenia [Unknown]
  - Immobile [Unknown]

NARRATIVE: CASE EVENT DATE: 20231115
